FAERS Safety Report 5151328-1 (Version None)
Quarter: 2006Q4

REPORT INFORMATION
  Report Type: 
  Country: None (occurrence: None)
  Receive Date: 20061115
  Receipt Date: 20061016
  Transmission Date: 20070319
  Serious: Yes (Hospitalization)
  Sender: FDA-Public Use
  Company Number: JP-JPN-A200604214

PATIENT
  Age: 57 Year
  Sex: Female
  Weight: 49 kg

DRUGS (3)
  1. IMIGRAN [Suspect]
     Indication: MIGRAINE
     Dosage: 50MG AS REQUIRED
     Route: 048
     Dates: start: 20060801, end: 20061003
  2. LOXIPAIN [Concomitant]
     Route: 048
  3. PL [Concomitant]
     Indication: NASOPHARYNGITIS
     Dosage: 1.5MG PER DAY
     Route: 048

REACTIONS (7)
  - ABDOMINAL PAIN [None]
  - DIARRHOEA [None]
  - HAEMATOCHEZIA [None]
  - INTESTINAL ISCHAEMIA [None]
  - INTESTINAL MUCOSAL HYPERTROPHY [None]
  - LARGE INTESTINAL ULCER [None]
  - VOMITING [None]
